FAERS Safety Report 23424373 (Version 2)
Quarter: 2024Q1

REPORT INFORMATION
  Report Type: Spontaneous
  Country: US (occurrence: US)
  Receive Date: 20240120
  Receipt Date: 20240302
  Transmission Date: 20240409
  Serious: Yes (Hospitalization, Disabling)
  Sender: FDA-Public Use
  Company Number: US-TEVA-VS-3135031

PATIENT
  Age: 52 Year
  Sex: Male

DRUGS (6)
  1. VALGANCICLOVIR [Suspect]
     Active Substance: VALGANCICLOVIR
     Indication: Antiviral treatment
     Route: 048
  2. VITAMIN K [Concomitant]
     Active Substance: PHYTONADIONE
     Indication: Coagulopathy
     Route: 048
  3. GOLIMUMAB [Concomitant]
     Active Substance: GOLIMUMAB
     Indication: Rheumatoid arthritis
     Route: 058
  4. METHOTREXATE [Concomitant]
     Active Substance: METHOTREXATE
     Indication: Rheumatoid arthritis
     Route: 048
  5. WARFARIN [Concomitant]
     Active Substance: WARFARIN
     Indication: Anticoagulant therapy
     Dosage: ON WEEKDAYS
     Route: 065
  6. WARFARIN [Concomitant]
     Active Substance: WARFARIN
     Indication: Anticoagulant therapy
     Dosage: ON SATURDAY AND SUNDAY
     Route: 065

REACTIONS (7)
  - Cytomegalovirus infection reactivation [Unknown]
  - Vomiting [Unknown]
  - Cerebellar stroke [Unknown]
  - Autoimmune disorder [Recovered/Resolved]
  - Movement disorder [Recovered/Resolved]
  - Antiphospholipid syndrome [Recovered/Resolved]
  - Coagulopathy [Recovered/Resolved]
